FAERS Safety Report 6641999-2 (Version None)
Quarter: 2010Q1

REPORT INFORMATION
  Report Type: 
  Country: None (occurrence: None)
  Receive Date: 20100319
  Receipt Date: 20100308
  Transmission Date: 20100710
  Serious: Yes (Hospitalization)
  Sender: FDA-Public Use
  Company Number: US-RB-002168-10

PATIENT
  Age: 38 Year
  Sex: Female

DRUGS (1)
  1. SUBOXONE [Suspect]
     Route: 060
     Dates: start: 20100103, end: 20100216

REACTIONS (4)
  - INSOMNIA [None]
  - INTERVERTEBRAL DISCITIS [None]
  - IRRITABILITY [None]
  - SPINAL CORD INFECTION [None]
